FAERS Safety Report 8797470 (Version 1)
Quarter: 2012Q4

REPORT INFORMATION
  Report Type: 
  Country: US (occurrence: US)
  Receive Date: 20120919
  Receipt Date: 20120919
  Transmission Date: 20130627
  Serious: Yes (Life-Threatening, Other)
  Sender: FDA-Public Use
  Company Number: US-009507513-1209USA005714

PATIENT
  Age: 49 Year
  Sex: Female

DRUGS (12)
  1. SAPHRIS [Suspect]
     Dosage: UNK
     Route: 060
  2. SEROQUEL [Suspect]
     Dosage: 50 mg every morning and noon, 100 mg every hour of sleep
     Route: 048
  3. HYDROCHLOROTHIAZIDE [Concomitant]
  4. AMBIEN CR [Concomitant]
  5. NORTRIPTYLINE [Concomitant]
  6. KLONOPIN [Concomitant]
  7. PHENERGAN (PROMETHAZINE HYDROCHLORIDE) [Concomitant]
  8. LISINOPRIL [Concomitant]
  9. PREVACID [Concomitant]
  10. SYNTHROID [Concomitant]
  11. ZOCOR [Concomitant]
     Route: 048
  12. ADDERALL XR [Concomitant]

REACTIONS (10)
  - Paranoia [Unknown]
  - Somnolence [Unknown]
  - Drug ineffective [Unknown]
  - Agitation [Unknown]
  - Panic attack [Unknown]
  - Ear disorder [Unknown]
  - Blister [Unknown]
  - Inappropriate affect [Unknown]
  - Depression [Unknown]
  - Mood altered [Unknown]
